FAERS Safety Report 5566319-6 (Version None)
Quarter: 2007Q4

REPORT INFORMATION
  Report Type: 
  Country: None (occurrence: None)
  Receive Date: 20071219
  Receipt Date: 20071206
  Transmission Date: 20080405
  Serious: Yes (Hospitalization, Other)
  Sender: FDA-Public Use
  Company Number: US-BAYER-200714083BCC

PATIENT
  Age: 46 Year
  Sex: Female

DRUGS (1)
  1. ALEVE [Suspect]
     Indication: PAIN
     Route: 048
     Dates: start: 20060101

REACTIONS (1)
  - HAEMOLYTIC ANAEMIA [None]
